FAERS Safety Report 14566741 (Version 3)
Quarter: 2018Q3

REPORT INFORMATION
  Report Type: Spontaneous
  Country: GB (occurrence: GB)
  Receive Date: 20180223
  Receipt Date: 20180812
  Transmission Date: 20181010
  Serious: Yes (Other)
  Sender: FDA-Public Use
  Company Number: GB-TEVA-2018-GB-854594

PATIENT
  Age: 68 Year
  Sex: Male

DRUGS (1)
  1. TEMAZEPAM. [Suspect]
     Active Substance: TEMAZEPAM
     Indication: INSOMNIA
     Dosage: 20 MILLIGRAM DAILY; 20 MG, HS
     Route: 048
     Dates: start: 201709

REACTIONS (34)
  - Panic attack [Recovering/Resolving]
  - Prostatic disorder [Unknown]
  - Drug ineffective [Unknown]
  - Claustrophobia [Recovering/Resolving]
  - Photosensitivity reaction [Unknown]
  - Confusional state [Unknown]
  - Paraesthesia [Unknown]
  - Unevaluable event [Unknown]
  - Dissociation [Unknown]
  - Headache [Unknown]
  - Dizziness [Unknown]
  - Withdrawal syndrome [Unknown]
  - Eating disorder [Recovering/Resolving]
  - Abdominal pain [Unknown]
  - Dry skin [Unknown]
  - Gastrointestinal motility disorder [Unknown]
  - Anal haemorrhage [Unknown]
  - Disturbance in attention [Unknown]
  - Thinking abnormal [Recovering/Resolving]
  - Hypoaesthesia [Unknown]
  - Condition aggravated [Recovered/Resolved]
  - Dependence [Recovering/Resolving]
  - Eye swelling [Unknown]
  - Decreased appetite [Unknown]
  - Tinnitus [Recovering/Resolving]
  - Hyperhidrosis [Unknown]
  - Insomnia [Recovering/Resolving]
  - Tinnitus [Recovering/Resolving]
  - Irritability [Unknown]
  - Depressed mood [Unknown]
  - Nervousness [Unknown]
  - Neck pain [Unknown]
  - Diarrhoea [Unknown]
  - Micturition disorder [Unknown]

NARRATIVE: CASE EVENT DATE: 2017
